FAERS Safety Report 7281645-0 (Version None)
Quarter: 2011Q1

REPORT INFORMATION
  Report Type: 
  Country: None (occurrence: None)
  Receive Date: 20110208
  Receipt Date: 20110202
  Transmission Date: 20110831
  Serious: Yes (Life-Threatening, Hospitalization, Other)
  Sender: FDA-Public Use
  Company Number: DE-ELI_LILLY_AND_COMPANY-DE201101006295

PATIENT
  Sex: Male

DRUGS (4)
  1. ZYPADHERA [Suspect]
     Indication: SCHIZOAFFECTIVE DISORDER
     Dosage: 300 MG, EVERY 2ND WEEK
     Route: 030
     Dates: start: 20101001, end: 20110125
  2. ERGENYL [Concomitant]
     Dosage: 600 MG, UNK
  3. ZYPREXA [Concomitant]
     Dosage: 5 MG, UNKNOWN
     Dates: start: 20110121
  4. ABILIFY [Concomitant]
     Dosage: 20 MG, UNK

REACTIONS (8)
  - LOSS OF CONSCIOUSNESS [None]
  - DELIRIUM [None]
  - UNRESPONSIVE TO STIMULI [None]
  - SOMNOLENCE [None]
  - HYPERTENSION [None]
  - CONVULSION [None]
  - BLOOD GLUCOSE DECREASED [None]
  - ENURESIS [None]
